FAERS Safety Report 20558744 (Version 9)
Quarter: 2023Q1

REPORT INFORMATION
  Report Type: Spontaneous
  Country: US (occurrence: US)
  Receive Date: 20220307
  Receipt Date: 20230307
  Transmission Date: 20230418
  Serious: Yes (Hospitalization, Other)
  Sender: FDA-Public Use
  Company Number: US-SA-SAC20220303001135

PATIENT
  Age: 66 Year

DRUGS (5)
  1. OXALIPLATIN [Suspect]
     Active Substance: OXALIPLATIN
     Dosage: UNK
     Route: 065
  2. LEUCOVORIN [Concomitant]
     Active Substance: LEUCOVORIN
  3. FLUOROURACIL [Concomitant]
     Active Substance: FLUOROURACIL
  4. LEUCOVORIN [Concomitant]
     Active Substance: LEUCOVORIN
  5. FLUOROURACIL [Concomitant]
     Active Substance: FLUOROURACIL

REACTIONS (2)
  - Seizure [Recovered/Resolved]
  - Febrile neutropenia [Recovered/Resolved]
